FAERS Safety Report 18749558 (Version 6)
Quarter: 2021Q4

REPORT INFORMATION
  Report Type: Spontaneous
  Country: US (occurrence: US)
  Receive Date: 20210116
  Receipt Date: 20211122
  Transmission Date: 20220303
  Serious: No
  Sender: FDA-Public Use
  Company Number: US-AMGEN-USASP2021005179

PATIENT
  Age: 35 Year
  Sex: Female

DRUGS (4)
  1. OTEZLA [Suspect]
     Active Substance: APREMILAST
     Indication: Product used for unknown indication
     Dosage: UNK
     Route: 065
  2. OTEZLA [Suspect]
     Active Substance: APREMILAST
     Dosage: UNK
     Route: 065
  3. HUMIRA [Suspect]
     Active Substance: ADALIMUMAB
     Indication: Psoriatic arthropathy
     Dosage: 40 MILLIGRAM (40 MG,1 IN 2-2)
     Route: 058
     Dates: start: 20201125, end: 202103
  4. HUMIRA [Suspect]
     Active Substance: ADALIMUMAB
     Indication: Psoriasis
     Dosage: 40 MILLIGRAM (40 MG,1 IN 2-2)
     Route: 058
     Dates: start: 202104

REACTIONS (17)
  - Joint swelling [Not Recovered/Not Resolved]
  - Skin plaque [Recovering/Resolving]
  - Fatigue [Not Recovered/Not Resolved]
  - Joint stiffness [Not Recovered/Not Resolved]
  - Hypoaesthesia [Recovered/Resolved]
  - Anxiety [Recovered/Resolved]
  - Depression [Recovered/Resolved]
  - Arthralgia [Not Recovered/Not Resolved]
  - Abdominal discomfort [Unknown]
  - Gait disturbance [Unknown]
  - Pain [Unknown]
  - Pain in extremity [Unknown]
  - Back pain [Unknown]
  - Post procedural complication [Recovering/Resolving]
  - Procedural pain [Unknown]
  - Psoriasis [Unknown]
  - Mobility decreased [Not Recovered/Not Resolved]

NARRATIVE: CASE EVENT DATE: 20200101
